FAERS Safety Report 7189979-5 (Version None)
Quarter: 2010Q4

REPORT INFORMATION
  Report Type: 
  Country: None (occurrence: None)
  Receive Date: 20101213
  Receipt Date: 20101125
  Transmission Date: 20110411
  Serious: Yes (Death)
  Sender: FDA-Public Use
  Company Number: 2010005081

PATIENT

DRUGS (1)
  1. ERLOTINIB(ERLOTINIB) (TABLET) (ERLOTINIB) [Suspect]
     Indication: HEAD AND NECK CANCER
     Dosage: (150 MG,DAILY),ORAL
     Route: 048

REACTIONS (19)
  - ARTERIAL HAEMORRHAGE [None]
  - ARTERIAL RUPTURE [None]
  - DEHYDRATION [None]
  - DERMATITIS [None]
  - DIARRHOEA [None]
  - DISEASE RECURRENCE [None]
  - DRUG TOXICITY [None]
  - DYSPHAGIA [None]
  - FATIGUE [None]
  - LYMPHADENOPATHY [None]
  - MYOCARDIAL INFARCTION [None]
  - OSTEONECROSIS OF JAW [None]
  - OSTEORADIONECROSIS [None]
  - PNEUMONIA ASPIRATION [None]
  - RADIATION SICKNESS SYNDROME [None]
  - RADIATION SKIN INJURY [None]
  - RASH [None]
  - REFUSAL OF TREATMENT BY PATIENT [None]
  - STOMATITIS [None]
